FAERS Safety Report 17489794 (Version 1)
Quarter: 2020Q1

REPORT INFORMATION
  Report Type: Spontaneous
  Country: US (occurrence: US)
  Receive Date: 20200303
  Receipt Date: 20200303
  Transmission Date: 20200409
  Serious: No
  Sender: FDA-Public Use
  Company Number: US-AKORN PHARMACEUTICALS-2019AKN00713

PATIENT
  Sex: Male
  Weight: 58.96 kg

DRUGS (5)
  1. CLARAVIS [Suspect]
     Active Substance: ISOTRETINOIN
     Indication: ACNE CYSTIC
     Dosage: 40 MG, 1X/DAY
     Route: 048
  2. CLARAVIS [Suspect]
     Active Substance: ISOTRETINOIN
     Dosage: 40 MG ONCE DAILY FOR A TOTAL OF 50 MG DAILY
     Route: 048
     Dates: start: 20181017
  3. MYORISAN [Suspect]
     Active Substance: ISOTRETINOIN
     Indication: ACNE CYSTIC
     Dosage: 40 MG EVERY DAY
     Route: 048
  4. AMNESTEEM [Suspect]
     Active Substance: ISOTRETINOIN
     Indication: ACNE CYSTIC
     Dosage: 10 MG ONCE DAILY, TO MAKE A TOTAL OF 50 MG DAILY
     Route: 048
  5. MYORISAN [Suspect]
     Active Substance: ISOTRETINOIN
     Indication: ACNE CYSTIC
     Dosage: 40 MG ONCE DAILY, TO MAKE 50 MG EVERY DAY
     Route: 048

REACTIONS (2)
  - Arthralgia [Unknown]
  - Intentional underdose [Recovered/Resolved]
